FAERS Safety Report 10997303 (Version 1)
Quarter: 2015Q2

REPORT INFORMATION
  Report Type: Spontaneous
  Country: US (occurrence: US)
  Receive Date: 20150408
  Receipt Date: 20150408
  Transmission Date: 20150821
  Serious: No
  Sender: FDA-Public Use
  Company Number: US-BANPHARM-20142530

PATIENT
  Age: 68 Year
  Sex: Female
  Weight: 111.13 kg

DRUGS (3)
  1. LISINOPRIL. [Concomitant]
     Active Substance: LISINOPRIL
  2. ALEVE [Suspect]
     Active Substance: NAPROXEN SODIUM
     Dosage: 2 DF, TID
     Route: 048
  3. METOPROLOL [Concomitant]
     Active Substance: METOPROLOL

REACTIONS (2)
  - Drug ineffective [Unknown]
  - Drug effect incomplete [Unknown]
